FAERS Safety Report 15928970 (Version 3)
Quarter: 2019Q3

REPORT INFORMATION
  Report Type: Spontaneous
  Country: TH (occurrence: TH)
  Receive Date: 20190206
  Receipt Date: 20190911
  Transmission Date: 20191004
  Serious: Yes (Hospitalization, Other)
  Sender: FDA-Public Use
  Company Number: TH-ASTRAZENECA-2019SE17641

PATIENT
  Age: 94 Year
  Sex: Female

DRUGS (2)
  1. IRESSA [Suspect]
     Active Substance: GEFITINIB
     Indication: LUNG NEOPLASM MALIGNANT
     Dosage: 1 DF, EVERY OTHER DAY
     Route: 048
     Dates: start: 20190119
  2. IRESSA [Suspect]
     Active Substance: GEFITINIB
     Indication: LUNG NEOPLASM MALIGNANT
     Route: 048
     Dates: start: 20180815

REACTIONS (7)
  - Infection [Recovered/Resolved]
  - Skin ulcer [Recovering/Resolving]
  - Fatigue [Recovered/Resolved]
  - Poor peripheral circulation [Unknown]
  - Dyspnoea [Recovered/Resolved]
  - Oedema peripheral [Recovering/Resolving]
  - Diarrhoea [Recovering/Resolving]

NARRATIVE: CASE EVENT DATE: 20180820
